FAERS Safety Report 7068579-1 (Version None)
Quarter: 2010Q4

REPORT INFORMATION
  Report Type: 
  Country: None (occurrence: None)
  Receive Date: 20101028
  Receipt Date: 20101018
  Transmission Date: 20110411
  Serious: Yes (Other)
  Sender: FDA-Public Use
  Company Number: DE-ROCHE-735946

PATIENT
  Age: 57 Year
  Sex: Female

DRUGS (5)
  1. BEVACIZUMAB [Suspect]
     Indication: GLIOBLASTOMA
     Route: 065
  2. IRINOTECAN HCL [Suspect]
     Indication: GLIOBLASTOMA
     Route: 065
  3. TEMOZOLOMIDE [Concomitant]
     Dosage: FOR CONSECUTIVE 5 DAYS EVERY 28 DAYS, FOR 7 DAYS WITHIN A 14-DAY CYCLE
  4. NIMUSTINE [Concomitant]
  5. TENIPOSIDE [Concomitant]

REACTIONS (1)
  - MALIGNANT GLIOMA [None]
